FAERS Safety Report 5749704-9 (Version None)
Quarter: 2008Q2

REPORT INFORMATION
  Report Type: 
  Country: None (occurrence: None)
  Receive Date: 20080522
  Receipt Date: 20080522
  Transmission Date: 20081010
  Serious: Yes (Other)
  Sender: FDA-Public Use
  Company Number: None

PATIENT
  Age: 61 Year
  Sex: Female
  Weight: 90.7194 kg

DRUGS (2)
  1. SINGULAIR [Suspect]
     Indication: ASTHMA
     Dosage: ONCE A DAY
     Dates: start: 20030101, end: 20080520
  2. SINGULAIR [Suspect]
     Indication: HYPERSENSITIVITY
     Dosage: ONCE A DAY
     Dates: start: 20030101, end: 20080520

REACTIONS (3)
  - DEPRESSION [None]
  - MOOD ALTERED [None]
  - STRESS [None]
